FAERS Safety Report 7606723-5 (Version None)
Quarter: 2011Q3

REPORT INFORMATION
  Report Type: 
  Country: None (occurrence: None)
  Receive Date: 20110713
  Receipt Date: 20110707
  Transmission Date: 20111222
  Serious: Yes (Hospitalization)
  Sender: FDA-Public Use
  Company Number: DE-MERCK-1107DEU00029

PATIENT
  Age: 65 Year
  Sex: Male

DRUGS (2)
  1. BEZAFIBRATE [Concomitant]
     Route: 048
     Dates: end: 20110509
  2. JANUMET [Suspect]
     Indication: TYPE 2 DIABETES MELLITUS
     Route: 048
     Dates: start: 20110401, end: 20110527

REACTIONS (5)
  - BLOOD CREATININE INCREASED [None]
  - DECREASED APPETITE [None]
  - WEIGHT DECREASED [None]
  - FLUID IMBALANCE [None]
  - FOOD AVERSION [None]
